FAERS Safety Report 8711795 (Version 2)
Quarter: 2012Q4

REPORT INFORMATION
  Report Type: 
  Country: BR (occurrence: BR)
  Receive Date: 20120807
  Receipt Date: 20121001
  Transmission Date: 20130627
  Serious: Yes (Hospitalization)
  Sender: FDA-Public Use
  Company Number: BR-009507513-1208BRA002156

PATIENT
  Sex: Male
  Weight: 67 kg

DRUGS (3)
  1. VICTRELIS [Suspect]
     Indication: HEPATITIS C
     Dosage: 200 mg, UNK
     Route: 048
     Dates: start: 201206, end: 201208
  2. RIBAVIRIN [Suspect]
     Indication: HEPATITIS C
     Dosage: 250 mg, bid
     Dates: start: 2010
  3. INTERFERON (UNSPECIFIED) [Concomitant]
     Indication: HEPATITIS C
     Dosage: 28 mcg, qw
     Dates: start: 2010

REACTIONS (6)
  - Gastrointestinal infection [Recovering/Resolving]
  - Bacterial infection [Recovering/Resolving]
  - Oedema peripheral [Recovering/Resolving]
  - Abdominal distension [Recovering/Resolving]
  - Anaemia [Recovering/Resolving]
  - Sepsis [Unknown]
